FAERS Safety Report 5929201-8 (Version None)
Quarter: 2008Q4

REPORT INFORMATION
  Report Type: 
  Country: None (occurrence: None)
  Receive Date: 20081023
  Receipt Date: 20081023
  Transmission Date: 20090506
  Serious: Yes (Life-Threatening, Hospitalization)
  Sender: FDA-Public Use
  Company Number: None

PATIENT
  Age: 66 Year
  Sex: Male
  Weight: 77 kg

DRUGS (6)
  1. HYDROCODONE BITARTRATE + ACETAMINOPHEN [Suspect]
     Indication: PAIN
     Dosage: PO
     Route: 048
  2. CELECOXIB [Suspect]
     Indication: PAIN
     Dosage: PO
     Route: 048
  3. TAMSULOSIN HCL [Concomitant]
  4. SIMVASTATIN [Concomitant]
  5. FINASTERIDE [Concomitant]
  6. METOPROLOL TARTRATE [Concomitant]

REACTIONS (3)
  - ANAPHYLACTIC REACTION [None]
  - HYPOTENSION [None]
  - MYOCARDIAL INFARCTION [None]
